FAERS Safety Report 23467280 (Version 9)
Quarter: 2025Q2

REPORT INFORMATION
  Report Type: Spontaneous
  Country: US (occurrence: US)
  Receive Date: 20240201
  Receipt Date: 20250623
  Transmission Date: 20250716
  Serious: Yes (Other)
  Sender: PFIZER
  Company Number: US-PFIZER INC-PV202400013931

PATIENT
  Age: 76 Year
  Sex: Female

DRUGS (34)
  1. IBRANCE [Suspect]
     Active Substance: PALBOCICLIB
     Indication: Breast cancer female
     Route: 048
     Dates: start: 20240110
  2. IBRANCE [Suspect]
     Active Substance: PALBOCICLIB
     Route: 048
  3. IBRANCE [Suspect]
     Active Substance: PALBOCICLIB
     Route: 048
     Dates: start: 20241001
  4. ALLEGRA ALLERGY [Concomitant]
     Active Substance: FEXOFENADINE HYDROCHLORIDE
  5. BENADRYL [Concomitant]
     Active Substance: DIPHENHYDRAMINE HYDROCHLORIDE
  6. CARDIZEM CD [Concomitant]
     Active Substance: DILTIAZEM HYDROCHLORIDE
  7. VITAMINS [Concomitant]
     Active Substance: VITAMINS
  8. GAUZE PAD [Concomitant]
  9. OMEGA 3 KRILL [Concomitant]
  10. OSTEO BI-FLEX [ASCORBIC ACID;BOSWELLIA SERRATA RESIN;CHONDROITIN SULFA [Concomitant]
  11. PAXIL CR [Concomitant]
     Active Substance: PAROXETINE HYDROCHLORIDE
  12. HERBALS\TURMERIC [Concomitant]
     Active Substance: HERBALS\TURMERIC
  13. CALCIUM [Concomitant]
     Active Substance: CALCIUM
  14. CYANOCOBALAMIN [Concomitant]
     Active Substance: CYANOCOBALAMIN
  15. EPINEPHRINE [Concomitant]
     Active Substance: EPINEPHRINE
  16. FAMOTIDINE [Concomitant]
     Active Substance: FAMOTIDINE
  17. FISH OIL [Concomitant]
     Active Substance: FISH OIL
  18. LORAZEPAM [Concomitant]
     Active Substance: LORAZEPAM
  19. LIGHT MINERAL OIL [Concomitant]
     Active Substance: LIGHT MINERAL OIL
  20. VITAMIN B12 [Concomitant]
     Active Substance: CYANOCOBALAMIN
  21. VITAMIN D3 [Concomitant]
     Active Substance: CHOLECALCIFEROL
  22. DILTIAZEM [Concomitant]
     Active Substance: DILTIAZEM
  23. ALLEGRA [Concomitant]
     Active Substance: FEXOFENADINE HYDROCHLORIDE
  24. HYDRALAZINE [Concomitant]
     Active Substance: HYDRALAZINE HYDROCHLORIDE
  25. MORPHINE SULFATE [Concomitant]
     Active Substance: MORPHINE SULFATE
  26. MOVANTIK [Concomitant]
     Active Substance: NALOXEGOL OXALATE
  27. ANASTROZOLE [Concomitant]
     Active Substance: ANASTROZOLE
  28. ASPIRIN [Concomitant]
     Active Substance: ASPIRIN
  29. EZETIMIBE [Concomitant]
     Active Substance: EZETIMIBE
  30. GABAPENTIN [Concomitant]
     Active Substance: GABAPENTIN
  31. CARDIZEM [Concomitant]
     Active Substance: DILTIAZEM HYDROCHLORIDE
  32. MINERAL OIL [Concomitant]
     Active Substance: MINERAL OIL
  33. PIROXICAM [Concomitant]
     Active Substance: PIROXICAM
  34. CHOLECALCIFEROL [Concomitant]
     Active Substance: CHOLECALCIFEROL

REACTIONS (4)
  - Neutropenia [Unknown]
  - Peripheral swelling [Unknown]
  - White blood cell count increased [Unknown]
  - COVID-19 [Not Recovered/Not Resolved]
